FAERS Safety Report 12322192 (Version 3)
Quarter: 2016Q2

REPORT INFORMATION
  Report Type: Report from Study
  Country: US (occurrence: US)
  Receive Date: 20160502
  Receipt Date: 20160602
  Transmission Date: 20160815
  Serious: Yes (Hospitalization, Other)
  Sender: FDA-Public Use
  Company Number: US-BAYER-2015-476992

PATIENT
  Age: 78 Year
  Sex: Male
  Weight: 85.26 kg

DRUGS (9)
  1. ADEMPAS [Suspect]
     Active Substance: RIOCIGUAT
     Indication: PULMONARY ARTERIAL HYPERTENSION
     Dosage: UNK
     Dates: start: 20150903
  2. ADEMPAS [Suspect]
     Active Substance: RIOCIGUAT
     Indication: PULMONARY ARTERIAL HYPERTENSION
     Dosage: 1.5 MG, TID
     Route: 048
  3. ADEMPAS [Suspect]
     Active Substance: RIOCIGUAT
     Indication: PULMONARY ARTERIAL HYPERTENSION
     Dosage: 1 MG, TID
     Route: 048
  4. ADEMPAS [Suspect]
     Active Substance: RIOCIGUAT
     Indication: PULMONARY ARTERIAL HYPERTENSION
     Dosage: 0.5 MG, TID
     Route: 048
  5. AMLODIPINE [Concomitant]
     Active Substance: AMLODIPINE BESYLATE
  6. ADEMPAS [Suspect]
     Active Substance: RIOCIGUAT
     Indication: PULMONARY ARTERIAL HYPERTENSION
     Dosage: 1.5 MG, TID
     Route: 048
  7. WARFARIN [Suspect]
     Active Substance: WARFARIN
  8. NORVASC [Concomitant]
     Active Substance: AMLODIPINE BESYLATE
  9. SELEXIPAG [Concomitant]
     Active Substance: SELEXIPAG
     Dosage: UNK
     Dates: end: 201605

REACTIONS (15)
  - Hypotension [Unknown]
  - Hypotension [None]
  - Peripheral swelling [None]
  - Hospitalisation [Recovering/Resolving]
  - Asthenia [Unknown]
  - Diarrhoea [Unknown]
  - Headache [Unknown]
  - Haemorrhage [Recovering/Resolving]
  - Haemorrhage [Unknown]
  - Dyspnoea [Unknown]
  - Vomiting [None]
  - Abdominal pain upper [Unknown]
  - Abdominal pain upper [None]
  - Swelling [Unknown]
  - Abdominal pain [Unknown]
